FAERS Safety Report 8180305-1 (Version None)
Quarter: 2012Q1

REPORT INFORMATION
  Report Type: 
  Country: None (occurrence: None)
  Receive Date: 20120229
  Receipt Date: 20120216
  Transmission Date: 20120608
  Serious: Yes (Hospitalization, Other)
  Sender: FDA-Public Use
  Company Number: INT_00054_2012

PATIENT
  Age: 70 Year
  Sex: Female

DRUGS (1)
  1. CEFTRIAXONE [Suspect]
     Indication: PYELONEPHRITIS ACUTE
     Dosage: (1 G QD PARENTERAL)
     Route: 051

REACTIONS (3)
  - ACUTE GENERALISED EXANTHEMATOUS PUSTULOSIS [None]
  - HYPOTENSION [None]
  - CONFUSIONAL STATE [None]
